FAERS Safety Report 5208771-1 (Version None)
Quarter: 2007Q1

REPORT INFORMATION
  Report Type: 
  Country: None (occurrence: None)
  Receive Date: 20070111
  Receipt Date: 20070111
  Transmission Date: 20070707
  Serious: Yes (Other)
  Sender: FDA-Public Use
  Company Number: None

PATIENT
  Age: 60 Year
  Sex: Male
  Weight: 111.6 kg

DRUGS (1)
  1. CEFOTAXIME 2 GRAM [Suspect]
     Indication: ANTIBIOTIC PROPHYLAXIS
     Dosage: 2 GRAMS EVERY 8 HRS IV
     Route: 042
     Dates: start: 20070104, end: 20070105

REACTIONS (1)
  - RASH [None]
